FAERS Safety Report 17070607 (Version 1)
Quarter: 2019Q4

REPORT INFORMATION
  Report Type: Report from Study
  Country: CA (occurrence: CA)
  Receive Date: 20191125
  Receipt Date: 20191125
  Transmission Date: 20200122
  Serious: Yes (Other)
  Sender: FDA-Public Use
  Company Number: CA-JNJFOC-20191118311

PATIENT
  Age: 71 Year
  Sex: Male
  Weight: 119 kg

DRUGS (1)
  1. STELARA [Suspect]
     Active Substance: USTEKINUMAB
     Indication: CROHN^S DISEASE
     Route: 058
     Dates: start: 20190725

REACTIONS (3)
  - Prostate cancer [Unknown]
  - Neuralgia [Unknown]
  - Candida infection [Unknown]

NARRATIVE: CASE EVENT DATE: 2019
